FAERS Safety Report 16319449 (Version 1)
Quarter: 2019Q2

REPORT INFORMATION
  Report Type: Spontaneous
  Country: US (occurrence: US)
  Receive Date: 20190516
  Receipt Date: 20190516
  Transmission Date: 20190711
  Serious: No
  Sender: FDA-Public Use
  Company Number: US-MYLANLABS-2019M1042988

PATIENT
  Age: 59 Year
  Sex: Female

DRUGS (7)
  1. RILUZOLE. [Suspect]
     Active Substance: RILUZOLE
     Indication: AMYOTROPHIC LATERAL SCLEROSIS
     Dosage: UNK
  2. RILUZOLE. [Suspect]
     Active Substance: RILUZOLE
     Dosage: 50 MILLIGRAM, BID
     Dates: start: 201811
  3. CELEXA [Concomitant]
     Active Substance: CITALOPRAM HYDROBROMIDE
     Dosage: UNK
  4. CANNABIDIOL [Concomitant]
     Active Substance: CANNABIDIOL
     Dosage: UNK
  5. VITAMIN B12 [Concomitant]
     Active Substance: CYANOCOBALAMIN
     Dosage: UNK
  6. RILUZOLE. [Suspect]
     Active Substance: RILUZOLE
     Dosage: 50 MILLIGRAM, QD
  7. VITAMIN D                          /00107901/ [Concomitant]
     Active Substance: ERGOCALCIFEROL
     Dosage: UNK

REACTIONS (3)
  - Fatigue [Unknown]
  - Tinnitus [Unknown]
  - Somnolence [Unknown]
